FAERS Safety Report 7893847-0 (Version None)
Quarter: 2011Q4

REPORT INFORMATION
  Report Type: 
  Country: None (occurrence: None)
  Receive Date: 20111104
  Receipt Date: 20111026
  Transmission Date: 20120403
  Serious: Yes (Other)
  Sender: FDA-Public Use
  Company Number: PHHY2011RO94531

PATIENT
  Sex: Male

DRUGS (4)
  1. AMLODIPINE BESYLATE/VALSARTAN [Suspect]
     Indication: HYPERTENSION
     Dosage: 80 MG OF VALS ANF 5 MG OF AMLO
     Dates: start: 20101217
  2. NEBIVOLOL HCL [Concomitant]
     Dosage: 5 MG, DAILY
  3. ACIDUM ACETYLSALICYLICUM [Concomitant]
     Dosage: 75 MG, DAILY
  4. CRESTOR [Concomitant]
     Dosage: 10 MG, DAILY

REACTIONS (2)
  - PULMONARY OEDEMA [None]
  - PALPITATIONS [None]
